FAERS Safety Report 22374599 (Version 2)
Quarter: 2023Q2

REPORT INFORMATION
  Report Type: Report from Study
  Country: US (occurrence: US)
  Receive Date: 20230526
  Receipt Date: 20230620
  Transmission Date: 20230721
  Serious: Yes (Hospitalization, Other)
  Sender: FDA-Public Use
  Company Number: US-BAUSCH-BL-2021-001929

PATIENT
  Age: 58 Year
  Sex: Female
  Weight: 97 kg

DRUGS (27)
  1. XIFAXAN [Suspect]
     Active Substance: RIFAXIMIN
     Indication: Hepatic cirrhosis
     Route: 048
     Dates: start: 20210104, end: 20210107
  2. XIFAXAN [Suspect]
     Active Substance: RIFAXIMIN
     Indication: Hepatic encephalopathy
     Dosage: MONTHS AGO
     Route: 048
     Dates: start: 2021
  3. XIFAXAN [Suspect]
     Active Substance: RIFAXIMIN
     Route: 048
     Dates: start: 20210118, end: 202112
  4. XIFAXAN [Suspect]
     Active Substance: RIFAXIMIN
     Route: 048
     Dates: start: 20220214
  5. CHRONULAC [Suspect]
     Active Substance: LACTULOSE
     Indication: Hepatic encephalopathy
     Dosage: 10 GM/15ML, AS DIRECTED
     Route: 048
     Dates: start: 202101
  6. LANTUS SOLOSTAR [Concomitant]
     Active Substance: INSULIN GLARGINE
     Indication: Type 2 diabetes mellitus
     Dosage: 100 UNIT/ML, SOLUTION PEN-INJECTOR
     Route: 058
  7. HUMALOG [Concomitant]
     Active Substance: INSULIN LISPRO
     Indication: Type 2 diabetes mellitus
  8. LASIX [Concomitant]
     Active Substance: FUROSEMIDE
     Indication: Oedema
  9. ZENPEP [Concomitant]
     Active Substance: PANCRELIPASE AMYLASE\PANCRELIPASE LIPASE\PANCRELIPASE PROTEASE
     Indication: Product used for unknown indication
  10. OMEPRAZOLE [Concomitant]
     Active Substance: OMEPRAZOLE
     Indication: Product used for unknown indication
  11. VIMPAT [Concomitant]
     Active Substance: LACOSAMIDE
     Indication: Product used for unknown indication
     Route: 048
  12. XELODA [Concomitant]
     Active Substance: CAPECITABINE
     Indication: Metastases to liver
  13. ALDACTONE [Concomitant]
     Active Substance: SPIRONOLACTONE
     Indication: Product used for unknown indication
     Route: 048
  14. TYLENOL WITH CODEINE [Concomitant]
     Active Substance: ACETAMINOPHEN\CODEINE PHOSPHATE
     Indication: Pain
     Dosage: 300-30 MG, IF NEEDED
     Route: 048
  15. CIPROFLOXACIN HYDROCHLORIDE [Concomitant]
     Active Substance: CIPROFLOXACIN HYDROCHLORIDE
     Indication: Product used for unknown indication
     Dosage: CIPRO FOR 3 DAYS
     Route: 048
  16. CIPROFLOXACIN HYDROCHLORIDE [Concomitant]
     Active Substance: CIPROFLOXACIN HYDROCHLORIDE
     Dosage: CIPRO
     Route: 048
  17. LEXAPRO [Concomitant]
     Active Substance: ESCITALOPRAM OXALATE
     Indication: Product used for unknown indication
     Route: 048
  18. KEPPRA [Concomitant]
     Active Substance: LEVETIRACETAM
     Indication: Product used for unknown indication
     Route: 048
  19. PROAMATINE [Concomitant]
     Active Substance: MIDODRINE HYDROCHLORIDE
     Indication: Product used for unknown indication
     Dosage: 1 IN THE MORNING AND 1 BEFORE BED TIME
     Route: 048
  20. VITAMINS [Concomitant]
     Active Substance: VITAMINS
     Indication: Product used for unknown indication
     Route: 048
  21. PROTONIX [Concomitant]
     Active Substance: PANTOPRAZOLE SODIUM
     Indication: Product used for unknown indication
     Dosage: DELAYED RELEASE
     Route: 048
  22. SEMAGLUTIDE [Concomitant]
     Active Substance: SEMAGLUTIDE
     Indication: Product used for unknown indication
     Dosage: 0.25 OR 0.5 MG/DOS, 2 MG/1.5 ML
     Route: 058
  23. ALDACTONE [Concomitant]
     Active Substance: SPIRONOLACTONE
     Indication: Product used for unknown indication
     Dosage: 0.25 OR 0.5 MG/DOS, 2 MG/1.5 ML
     Route: 058
  24. AMMONIUM LACTATE [Concomitant]
     Active Substance: AMMONIUM LACTATE
     Indication: Dry skin
     Dosage: 12 %
     Route: 061
  25. ESCITALOPRAM OXALATE [Concomitant]
     Active Substance: ESCITALOPRAM OXALATE
     Indication: Product used for unknown indication
     Route: 048
  26. MIDODRINE HYDROCHLORIDE [Concomitant]
     Active Substance: MIDODRINE HYDROCHLORIDE
     Indication: Product used for unknown indication
     Dosage: 1 IN MORNING AND 1 TABLET BEFORE BEDTIME.
     Route: 048
  27. MINERALS\VITAMINS [Concomitant]
     Active Substance: MINERALS\VITAMINS
     Indication: Product used for unknown indication
     Route: 048

REACTIONS (21)
  - Ammonia abnormal [Unknown]
  - Hepatic encephalopathy [Unknown]
  - Condition aggravated [Unknown]
  - Cellulitis [Unknown]
  - Spontaneous bacterial peritonitis [Unknown]
  - Asthenia [Unknown]
  - Back pain [Unknown]
  - Ascites [Unknown]
  - Hepatic lesion [Unknown]
  - Varices oesophageal [Unknown]
  - Memory impairment [Not Recovered/Not Resolved]
  - Weight decreased [Unknown]
  - Somnolence [Unknown]
  - Urinary tract infection [Unknown]
  - Dyspnoea [Unknown]
  - Diarrhoea [Unknown]
  - Dehydration [Unknown]
  - Insurance issue [Unknown]
  - Treatment noncompliance [Unknown]
  - Inability to afford medication [Unknown]
  - Product use issue [Unknown]

NARRATIVE: CASE EVENT DATE: 20210101
